FAERS Safety Report 18947579 (Version 2)
Quarter: 2021Q2

REPORT INFORMATION
  Report Type: Spontaneous
  Country: DE (occurrence: DE)
  Receive Date: 20210226
  Receipt Date: 20210412
  Transmission Date: 20210717
  Serious: Yes (Hospitalization)
  Sender: FDA-Public Use
  Company Number: DE-PFIZER INC-9718552

PATIENT
  Age: 49 Year
  Sex: Male

DRUGS (2)
  1. ZITHROMAX [Suspect]
     Active Substance: AZITHROMYCIN DIHYDRATE
     Indication: RESPIRATORY TRACT INFECTION
     Dosage: UNK
     Route: 048
  2. ROXITHROMYCIN [Suspect]
     Active Substance: ROXITHROMYCIN
     Indication: RHINITIS
     Dosage: UNK
     Route: 065

REACTIONS (7)
  - Rhinitis [Recovering/Resolving]
  - Eosinophilic granulomatosis with polyangiitis [Recovering/Resolving]
  - Face oedema [Recovered/Resolved]
  - Arthralgia [Recovering/Resolving]
  - Pericardial effusion [Recovering/Resolving]
  - Myalgia [Recovering/Resolving]
  - Mononeuropathy multiplex [Recovering/Resolving]
